FAERS Safety Report 18331511 (Version 2)
Quarter: 2020Q4

REPORT INFORMATION
  Report Type: Spontaneous
  Country: US (occurrence: US)
  Receive Date: 20200930
  Receipt Date: 20201009
  Transmission Date: 20210113
  Serious: Yes (Hospitalization, Other)
  Sender: FDA-Public Use
  Company Number: US-ASTRAZENECA-2020SF25279

PATIENT
  Age: 18543 Day
  Sex: Male
  Weight: 107.4 kg

DRUGS (32)
  1. AMOXICILLIN. [Concomitant]
     Active Substance: AMOXICILLIN
  2. HYDROCODONE-IBUPROFEN [Concomitant]
     Active Substance: HYDROCODONE BITARTRATE\IBUPROFEN
  3. PREDNISONE. [Concomitant]
     Active Substance: PREDNISONE
  4. GLUCOPHAGE [Concomitant]
     Active Substance: METFORMIN HYDROCHLORIDE
  5. AZITHROMYCIN ANHYDROUS. [Concomitant]
     Active Substance: AZITHROMYCIN ANHYDROUS
  6. TIZANIDINE HCL [Concomitant]
     Active Substance: TIZANIDINE HYDROCHLORIDE
  7. CLEOCIN [Concomitant]
     Active Substance: CLINDAMYCIN PHOSPHATE
  8. FARXIGA [Suspect]
     Active Substance: DAPAGLIFLOZIN PROPANEDIOL
     Indication: BLOOD PRESSURE DECREASED
     Route: 048
     Dates: start: 20180509, end: 20190210
  9. OXYCODONE-ACETAMINOPHEN [Concomitant]
     Active Substance: ACETAMINOPHEN\OXYCODONE HYDROCHLORIDE
  10. INVOKANA [Concomitant]
     Active Substance: CANAGLIFLOZIN
  11. MUPIROCIN. [Concomitant]
     Active Substance: MUPIROCIN
  12. FARXIGA [Suspect]
     Active Substance: DAPAGLIFLOZIN PROPANEDIOL
     Indication: TYPE 2 DIABETES MELLITUS
     Route: 048
     Dates: start: 20180509, end: 20190210
  13. FARXIGA [Suspect]
     Active Substance: DAPAGLIFLOZIN PROPANEDIOL
     Indication: WEIGHT DECREASED
     Route: 048
     Dates: start: 20180509, end: 20190210
  14. CLONAZEPAM. [Concomitant]
     Active Substance: CLONAZEPAM
  15. LYRICA [Concomitant]
     Active Substance: PREGABALIN
  16. VIAGRA [Concomitant]
     Active Substance: SILDENAFIL CITRATE
  17. LISINOPRIL. [Concomitant]
     Active Substance: LISINOPRIL
  18. GLIMEPIRIDE. [Concomitant]
     Active Substance: GLIMEPIRIDE
  19. TRAZODONE [Concomitant]
     Active Substance: TRAZODONE HYDROCHLORIDE
  20. ATORVASTATIN [Concomitant]
     Active Substance: ATORVASTATIN
  21. CYCLOBENZAPRINE. [Concomitant]
     Active Substance: CYCLOBENZAPRINE
  22. VITAMIN D2 [Concomitant]
     Active Substance: ERGOCALCIFEROL
  23. MAGNESIUM OXIDE. [Concomitant]
     Active Substance: MAGNESIUM OXIDE
  24. VITAMIN B COMPLEX [Concomitant]
     Active Substance: CYANOCOBALAMIN\DEXPANTHENOL\NIACINAMIDE\PYRIDOXINE HYDROCHLORIDE\RIBOFLAVIN 5^-PHOSPHATE SODIUM\THIAMINE HYDROCHLORIDE\VITAMIN B COMPLEX
  25. ATORVASTATIN CALCIUM. [Concomitant]
     Active Substance: ATORVASTATIN CALCIUM
  26. CEPHALEXIN. [Concomitant]
     Active Substance: CEPHALEXIN
  27. OPANA [Concomitant]
     Active Substance: OXYMORPHONE HYDROCHLORIDE
  28. HYDROXYZINE HCL [Concomitant]
     Active Substance: HYDROXYZINE HYDROCHLORIDE
  29. HYDROCODON-ACETAMINOPHEN [Concomitant]
     Active Substance: ACETAMINOPHEN\HYDROCODONE
  30. SULFAMETHOXAZOLE [Concomitant]
     Active Substance: SULFAMETHOXAZOLE
  31. FENOFIBRATE. [Concomitant]
     Active Substance: FENOFIBRATE
  32. METFORMIN HCL [Concomitant]
     Active Substance: METFORMIN HYDROCHLORIDE

REACTIONS (5)
  - Scrotal abscess [Unknown]
  - Groin abscess [Unknown]
  - Soft tissue necrosis [Unknown]
  - Cellulitis [Unknown]
  - Pain [Unknown]

NARRATIVE: CASE EVENT DATE: 20190108
